FAERS Safety Report 10717305 (Version 1)
Quarter: 2015Q1

REPORT INFORMATION
  Report Type: Spontaneous
  Country: BR (occurrence: BR)
  Receive Date: 20150116
  Receipt Date: 20150116
  Transmission Date: 20150721
  Serious: Yes (Hospitalization)
  Sender: FDA-Public Use
  Company Number: BR-PFIZER INC-2014296750

PATIENT
  Age: 63 Year
  Sex: Male
  Weight: 60 kg

DRUGS (5)
  1. LYRICA [Suspect]
     Active Substance: PREGABALIN
     Indication: SCIATIC NERVE INJURY
  2. CIMELIDE [Concomitant]
     Active Substance: NIMESULIDE
     Indication: PAIN
     Dosage: UNK
     Dates: start: 201405
  3. TRAMAL [Concomitant]
     Active Substance: TRAMADOL
     Dosage: UNK
     Dates: start: 2014
  4. LYRICA [Suspect]
     Active Substance: PREGABALIN
     Indication: PAIN IN EXTREMITY
     Dosage: 1 TABLET, 1X/DAY
     Route: 048
     Dates: start: 20141024
  5. TRAMADOL [Concomitant]
     Active Substance: TRAMADOL
     Indication: PAIN
     Dosage: 1 OR 2 TABLETS, UNSPECIFIED FREQUENCY
     Dates: start: 201310

REACTIONS (6)
  - Infection [Recovered/Resolved]
  - Product quality issue [Unknown]
  - Nodule [Recovered/Resolved]
  - Product blister packaging issue [Unknown]
  - Pain [Unknown]
  - Cyst rupture [Recovered/Resolved]

NARRATIVE: CASE EVENT DATE: 2014
